FAERS Safety Report 6032205-0 (Version None)
Quarter: 2009Q1

REPORT INFORMATION
  Report Type: 
  Country: None (occurrence: None)
  Receive Date: 20090108
  Receipt Date: 20081230
  Transmission Date: 20090719
  Serious: Yes (Other)
  Sender: FDA-Public Use
  Company Number: US-PFIZER INC-2008095710

PATIENT
  Sex: Male
  Weight: 92 kg

DRUGS (3)
  1. MEDROL [Suspect]
     Dates: start: 20081031
  2. LEVAQUIN [Concomitant]
  3. GUAIFENESIN [Concomitant]

REACTIONS (8)
  - ACTIVITIES OF DAILY LIVING IMPAIRED [None]
  - ANXIETY [None]
  - DEPRESSION [None]
  - INCORRECT DRUG ADMINISTRATION DURATION [None]
  - MOOD SWINGS [None]
  - PERSONALITY CHANGE [None]
  - TREMOR [None]
  - WEIGHT DECREASED [None]
